FAERS Safety Report 14860580 (Version 2)
Quarter: 2018Q2

REPORT INFORMATION
  Report Type: Report from Study
  Country: US (occurrence: US)
  Receive Date: 20180508
  Receipt Date: 20180620
  Transmission Date: 20180711
  Serious: Yes (Death)
  Sender: FDA-Public Use
  Company Number: US-ASTRAZENECA-2018SE59063

PATIENT
  Age: 62 Year
  Sex: Male
  Weight: 82 kg

DRUGS (3)
  1. TAGRISSO [Suspect]
     Active Substance: OSIMERTINIB
     Indication: LUNG NEOPLASM MALIGNANT
     Route: 048
     Dates: start: 20180101
  2. TAGRISSO [Suspect]
     Active Substance: OSIMERTINIB
     Indication: GENE MUTATION
     Route: 048
     Dates: start: 20180101
  3. TAGRISSO [Suspect]
     Active Substance: OSIMERTINIB
     Indication: GENE MUTATION
     Route: 048
     Dates: start: 20180101

REACTIONS (1)
  - Malignant neoplasm progression [Fatal]

NARRATIVE: CASE EVENT DATE: 2018
